FAERS Safety Report 6639797-9 (Version None)
Quarter: 2010Q1

REPORT INFORMATION
  Report Type: 
  Country: None (occurrence: None)
  Receive Date: 20100318
  Receipt Date: 20100308
  Transmission Date: 20100710
  Serious: Yes (Other)
  Sender: FDA-Public Use
  Company Number: US-MYLANLABS-2010S1001459

PATIENT
  Age: 41 Year
  Sex: Male

DRUGS (7)
  1. AMNESTEEM [Suspect]
     Indication: ROSACEA
     Route: 048
     Dates: start: 20100115, end: 20100116
  2. AZITHROMYCIN [Concomitant]
  3. ISENTRESS [Concomitant]
  4. PAXIL [Concomitant]
  5. DAPSONE [Concomitant]
  6. TRUVADA /01398801/ [Concomitant]
  7. NORVIR [Concomitant]

REACTIONS (2)
  - BLOOD PRESSURE INCREASED [None]
  - MIGRAINE [None]
